FAERS Safety Report 7426857-8 (Version None)
Quarter: 2011Q2

REPORT INFORMATION
  Report Type: 
  Country: None (occurrence: None)
  Receive Date: 20110420
  Receipt Date: 20090105
  Transmission Date: 20111010
  Serious: Yes (Other)
  Sender: FDA-Public Use
  Company Number: DE-GENENTECH-316966

PATIENT
  Age: 71 Year
  Sex: Female

DRUGS (1)
  1. LUCENTIS [Suspect]
     Indication: MACULAR DEGENERATION
     Dosage: UNK
     Route: 031
     Dates: start: 20071219

REACTIONS (7)
  - NODULE [None]
  - EYE INJURY [None]
  - ABNORMAL SENSATION IN EYE [None]
  - EYE PAIN [None]
  - DEPRESSED MOOD [None]
  - EYE HAEMORRHAGE [None]
  - VISUAL ACUITY REDUCED [None]
